FAERS Safety Report 22918835 (Version 3)
Quarter: 2024Q2

REPORT INFORMATION
  Report Type: Spontaneous
  Country: CA (occurrence: CA)
  Receive Date: 20230907
  Receipt Date: 20240429
  Transmission Date: 20240716
  Serious: Yes (Death, Life-Threatening, Hospitalization, Disabling, Other)
  Sender: FDA-Public Use
  Company Number: CA-UCBSA-2018014080

PATIENT
  Age: 43 Year
  Sex: Female
  Weight: 68 kg

DRUGS (326)
  1. ACETAMINOPHEN [Suspect]
     Active Substance: ACETAMINOPHEN
     Dosage: 10 MG
     Route: 065
  2. ACETAMINOPHEN [Suspect]
     Active Substance: ACETAMINOPHEN
     Indication: Rheumatoid arthritis
     Dosage: UNK
     Route: 065
  3. ACETAMINOPHEN [Suspect]
     Active Substance: ACETAMINOPHEN
     Dosage: UNK
     Route: 065
  4. ADALIMUMAB [Suspect]
     Active Substance: ADALIMUMAB\ISOPROPYL ALCOHOL
     Dosage: 4 MG
     Route: 058
  5. ADALIMUMAB [Suspect]
     Active Substance: ADALIMUMAB\ISOPROPYL ALCOHOL
     Dosage: 40 MG, QW, (1 TIME EVERY 1 WEEK)
     Route: 058
  6. ADALIMUMAB [Suspect]
     Active Substance: ADALIMUMAB\ISOPROPYL ALCOHOL
     Dosage: 40 MG, Q2W (1 TIME EVERY 2 WEEKS)
     Route: 058
  7. ADALIMUMAB [Suspect]
     Active Substance: ADALIMUMAB\ISOPROPYL ALCOHOL
     Dosage: 40 MG
     Route: 048
  8. ADALIMUMAB [Suspect]
     Active Substance: ADALIMUMAB\ISOPROPYL ALCOHOL
     Indication: Product used for unknown indication
     Dosage: 40 MG
     Route: 058
  9. ALENDRONATE SODIUM [Suspect]
     Active Substance: ALENDRONATE SODIUM
     Indication: Rheumatoid arthritis
     Dosage: UNK
     Route: 065
  10. ALENDRONATE SODIUM [Suspect]
     Active Substance: ALENDRONATE SODIUM
     Dosage: 0.5 MG
     Route: 048
  11. ALENDRONATE SODIUM [Suspect]
     Active Substance: ALENDRONATE SODIUM
     Dosage: 5 MG
     Route: 048
  12. ALENDRONATE SODIUM [Suspect]
     Active Substance: ALENDRONATE SODIUM
     Dosage: UNK
     Route: 065
  13. ALENDRONATE SODIUM [Suspect]
     Active Substance: ALENDRONATE SODIUM
     Indication: Rheumatoid arthritis
     Dosage: UNK, (INTRA CORPUS)
     Route: 048
  14. ALENDRONIC ACID [Suspect]
     Active Substance: ALENDRONIC ACID
     Indication: Rheumatoid arthritis
     Dosage: UNK
     Route: 048
  15. ABATACEPT [Suspect]
     Active Substance: ABATACEPT
     Indication: Rheumatoid arthritis
     Dosage: UNK
     Route: 042
  16. ABATACEPT [Suspect]
     Active Substance: ABATACEPT
     Dosage: UNK
     Route: 058
  17. ACTEMRA [Suspect]
     Active Substance: TOCILIZUMAB
     Dosage: 20 MG
     Route: 048
  18. ACTEMRA [Suspect]
     Active Substance: TOCILIZUMAB
     Dosage: 2912 MG
     Route: 042
  19. ACTEMRA [Suspect]
     Active Substance: TOCILIZUMAB
     Dosage: 3011.2 MG
     Route: 042
  20. ACTEMRA [Suspect]
     Active Substance: TOCILIZUMAB
     Dosage: 752.8 MG
     Route: 042
  21. ACTEMRA [Suspect]
     Active Substance: TOCILIZUMAB
     Dosage: UNK
     Route: 042
  22. ACTEMRA [Suspect]
     Active Substance: TOCILIZUMAB
     Dosage: UNK
     Route: 048
  23. ACTEMRA [Suspect]
     Active Substance: TOCILIZUMAB
     Dosage: UNK
     Route: 058
  24. ACTEMRA [Suspect]
     Active Substance: TOCILIZUMAB
     Dosage: UNK
     Route: 058
  25. ACTEMRA [Suspect]
     Active Substance: TOCILIZUMAB
     Dosage: UNK
     Route: 061
  26. ACTEMRA [Suspect]
     Active Substance: TOCILIZUMAB
     Dosage: UNK
     Route: 065
  27. ACTEMRA [Suspect]
     Active Substance: TOCILIZUMAB
     Indication: Rheumatoid arthritis
     Dosage: UNK SINCE 4 YEARS
     Route: 042
  28. PREDNISONE [Suspect]
     Active Substance: PREDNISONE
     Indication: Rheumatoid arthritis
     Dosage: 1 MG
     Route: 065
  29. APREMILAST [Suspect]
     Active Substance: APREMILAST
     Indication: Product used for unknown indication
     Dosage: 3 MG, BID
     Route: 065
  30. ARAVA [Suspect]
     Active Substance: LEFLUNOMIDE
     Indication: Rheumatoid arthritis
     Dosage: 20 MG, QD
     Route: 048
  31. ARAVA [Suspect]
     Active Substance: LEFLUNOMIDE
     Dosage: UNK
     Route: 065
  32. CELECOXIB [Suspect]
     Active Substance: CELECOXIB
     Indication: Rheumatoid arthritis
     Dosage: 2 DOSAGE FORM, QD (1 EVERY 1 DAYS)
     Route: 048
  33. CETIRIZINE [Suspect]
     Active Substance: CETIRIZINE HYDROCHLORIDE
     Indication: Rheumatoid arthritis
     Dosage: 10 MG
     Route: 048
  34. CETIRIZINE [Suspect]
     Active Substance: CETIRIZINE HYDROCHLORIDE
     Dosage: 10 MG
     Route: 065
  35. CETIRIZINE [Suspect]
     Active Substance: CETIRIZINE HYDROCHLORIDE
     Dosage: 10 MG
     Route: 065
  36. CETIRIZINE [Suspect]
     Active Substance: CETIRIZINE HYDROCHLORIDE
     Dosage: 10 MG
     Route: 065
  37. CETIRIZINE [Suspect]
     Active Substance: CETIRIZINE HYDROCHLORIDE
     Dosage: UNK
     Route: 065
  38. CETIRIZINE [Suspect]
     Active Substance: CETIRIZINE HYDROCHLORIDE
     Dosage: UNK
     Route: 065
  39. CHOLECALCIFEROL [Suspect]
     Active Substance: CHOLECALCIFEROL
     Indication: Rheumatoid arthritis
     Dosage: UNK
     Route: 065
  40. CELEBREX [Suspect]
     Active Substance: CELECOXIB
     Indication: Product used for unknown indication
     Dosage: 2 DF, QD
     Route: 048
  41. CERTOLIZUMAB PEGOL [Suspect]
     Active Substance: CERTOLIZUMAB PEGOL
     Indication: Rheumatoid arthritis
     Dosage: UNK
     Route: 058
  42. CETIRIZINE HYDROCHLORIDE [Suspect]
     Active Substance: CETIRIZINE HYDROCHLORIDE
     Indication: Rheumatoid arthritis
     Dosage: UNK
     Route: 065
  43. CETIRIZINE HYDROCHLORIDE [Suspect]
     Active Substance: CETIRIZINE HYDROCHLORIDE
     Dosage: UNK
     Route: 065
  44. CETIRIZINE HYDROCHLORIDE [Suspect]
     Active Substance: CETIRIZINE HYDROCHLORIDE
     Dosage: 10 MG, Q24H
     Route: 048
  45. CETIRIZINE HYDROCHLORIDE [Suspect]
     Active Substance: CETIRIZINE HYDROCHLORIDE
     Dosage: 10 MG
     Route: 016
  46. CETIRIZINE HYDROCHLORIDE [Suspect]
     Active Substance: CETIRIZINE HYDROCHLORIDE
     Indication: Rheumatoid arthritis
     Dosage: 10 MG
     Route: 048
  47. CETIRIZINE HYDROCHLORIDE [Suspect]
     Active Substance: CETIRIZINE HYDROCHLORIDE
     Dosage: 20 MG
     Route: 065
  48. CETIRIZINE HYDROCHLORIDE [Suspect]
     Active Substance: CETIRIZINE HYDROCHLORIDE
     Dosage: 25 MG
     Route: 005
  49. CETIRIZINE HYDROCHLORIDE [Suspect]
     Active Substance: CETIRIZINE HYDROCHLORIDE
     Dosage: 25 MG
     Route: 065
  50. CETIRIZINE HYDROCHLORIDE AND PSEUDOEPHEDRINE HYDROCHLORIDE [Suspect]
     Active Substance: CETIRIZINE HYDROCHLORIDE\PSEUDOEPHEDRINE HYDROCHLORIDE
     Dosage: 10 MG, Q24H
     Route: 048
  51. CETIRIZINE HYDROCHLORIDE AND PSEUDOEPHEDRINE HYDROCHLORIDE [Suspect]
     Active Substance: CETIRIZINE HYDROCHLORIDE\PSEUDOEPHEDRINE HYDROCHLORIDE
     Dosage: 25 MG
     Route: 065
  52. CETIRIZINE HYDROCHLORIDE AND PSEUDOEPHEDRINE HYDROCHLORIDE [Suspect]
     Active Substance: CETIRIZINE HYDROCHLORIDE\PSEUDOEPHEDRINE HYDROCHLORIDE
     Indication: Rheumatoid arthritis
     Dosage: UNK
     Route: 065
  53. CETIRIZINE HYDROCHLORIDE AND PSEUDOEPHEDRINE HYDROCHLORIDE [Suspect]
     Active Substance: CETIRIZINE HYDROCHLORIDE\PSEUDOEPHEDRINE HYDROCHLORIDE
     Dosage: UNK
     Route: 065
  54. CHLORAPREP [Suspect]
     Active Substance: CHLORHEXIDINE GLUCONATE\ISOPROPYL ALCOHOL
     Indication: Product used for unknown indication
     Dosage: UNK
     Route: 048
  55. CHLORAPREP [Suspect]
     Active Substance: CHLORHEXIDINE GLUCONATE\ISOPROPYL ALCOHOL
     Dosage: UNK
     Route: 061
  56. CHLORHEXIDINE [Suspect]
     Active Substance: CHLORHEXIDINE\CHLORHEXIDINE GLUCONATE
     Dosage: UNK
     Route: 002
  57. CHLORHEXIDINE [Suspect]
     Active Substance: CHLORHEXIDINE\CHLORHEXIDINE GLUCONATE
     Dosage: UNK
     Route: 061
  58. CHLORHEXIDINE [Suspect]
     Active Substance: CHLORHEXIDINE\CHLORHEXIDINE GLUCONATE
     Indication: Product used for unknown indication
     Dosage: UNK
     Route: 065
  59. CHLORHEXIDINE GLUCONATE [Suspect]
     Active Substance: CHLORHEXIDINE GLUCONATE
     Indication: Rheumatoid arthritis
     Dosage: UNK
     Route: 002
  60. CIMZIA [Suspect]
     Active Substance: CERTOLIZUMAB PEGOL
     Dosage: 1 DOSAGE FORM, Q24H
     Route: 058
  61. CIMZIA [Suspect]
     Active Substance: CERTOLIZUMAB PEGOL
     Dosage: 2 DOSAGE FORM
     Route: 058
  62. CIMZIA [Suspect]
     Active Substance: CERTOLIZUMAB PEGOL
     Indication: Rheumatoid arthritis
     Dosage: 400 MG
     Route: 058
  63. CIMZIA [Suspect]
     Active Substance: CERTOLIZUMAB PEGOL
     Indication: Psoriasis
     Dosage: UNK
     Route: 065
  64. CETIRIZINE HYDROCHLORIDE\PSEUDOEPHEDRINE HYDROCHLORIDE [Suspect]
     Active Substance: CETIRIZINE HYDROCHLORIDE\PSEUDOEPHEDRINE HYDROCHLORIDE
     Indication: Rheumatoid arthritis
     Dosage: UNK
     Route: 065
  65. CORTISONE [Suspect]
     Active Substance: CORTISONE
     Dosage: UNK
     Route: 003
  66. CORTISONE [Suspect]
     Active Substance: CORTISONE
     Dosage: UNK
     Route: 003
  67. CORTISONE [Suspect]
     Active Substance: CORTISONE
     Indication: Rheumatoid arthritis
     Dosage: UNK
     Route: 048
  68. CORTISONE [Suspect]
     Active Substance: CORTISONE
     Dosage: UNK
     Route: 058
  69. CORTISONE [Suspect]
     Active Substance: CORTISONE
     Dosage: UNK
     Route: 065
  70. CORTISONE ACETATE [Suspect]
     Active Substance: CORTISONE ACETATE
     Dosage: 25 MG, QD
     Route: 061
  71. CORTISONE ACETATE [Suspect]
     Active Substance: CORTISONE ACETATE
     Dosage: 25 MG
     Route: 061
  72. CORTISONE ACETATE [Suspect]
     Active Substance: CORTISONE ACETATE
     Indication: Rheumatoid arthritis
     Dosage: 25 MG
     Route: 065
  73. CORTISONE ACETATE [Suspect]
     Active Substance: CORTISONE ACETATE
     Dosage: UNK
     Route: 048
  74. CORTISONE ACETATE [Suspect]
     Active Substance: CORTISONE ACETATE
     Dosage: UNK
     Route: 065
  75. COSENTYX [Suspect]
     Active Substance: SECUKINUMAB
     Indication: Psoriatic arthropathy
     Dosage: UNK
     Route: 042
  76. DICLOFENAC [Suspect]
     Active Substance: DICLOFENAC
     Indication: Product used for unknown indication
     Dosage: 50 MG
     Route: 065
  77. DICLOFENAC POTASSIUM [Suspect]
     Active Substance: DICLOFENAC POTASSIUM
     Indication: Product used for unknown indication
     Dosage: UNK
     Route: 065
  78. DICLOFENAC SODIUM [Suspect]
     Active Substance: DICLOFENAC\DICLOFENAC SODIUM
     Dosage: 50 MG
     Route: 047
  79. DICLOFENAC SODIUM [Suspect]
     Active Substance: DICLOFENAC\DICLOFENAC SODIUM
     Indication: Product used for unknown indication
     Dosage: 50 MG
     Route: 065
  80. DICLOFENAC SODIUM [Suspect]
     Active Substance: DICLOFENAC\DICLOFENAC SODIUM
     Dosage: UNK
     Route: 065
  81. DOXYCYCLINE [Suspect]
     Active Substance: DOXYCYCLINE
     Indication: Product used for unknown indication
     Dosage: 40 MG
     Route: 065
  82. DESOXIMETASONE [Suspect]
     Active Substance: DESOXIMETASONE
     Indication: Rheumatoid arthritis
     Dosage: 25 MG, QW (1 EVERY 1 WEEKS)
     Route: 048
  83. DESOXIMETASONE [Suspect]
     Active Substance: DESOXIMETASONE
     Dosage: UNK
     Route: 048
  84. DESOXIMETASONE [Suspect]
     Active Substance: DESOXIMETASONE
     Dosage: UNK
     Route: 058
  85. DESOXIMETASONE [Suspect]
     Active Substance: DESOXIMETASONE
     Dosage: UNK
     Route: 065
  86. DICLOFENAC DIETHYLAMINE [Suspect]
     Active Substance: DICLOFENAC DIETHYLAMINE
     Indication: Product used for unknown indication
     Dosage: UNK
     Route: 065
  87. ERELZI [Suspect]
     Active Substance: ETANERCEPT-SZZS
     Dosage: UNK
     Route: 058
  88. ERELZI [Suspect]
     Active Substance: ETANERCEPT-SZZS
     Indication: Rheumatoid arthritis
     Dosage: UNK
     Route: 065
  89. ETANERCEPT [Suspect]
     Active Substance: ETANERCEPT
     Indication: Rheumatoid arthritis
     Dosage: 50 MG, QW
     Route: 058
  90. ENBREL [Suspect]
     Active Substance: BENZYL ALCOHOL\ETANERCEPT
     Indication: Psoriatic arthropathy
     Dosage: 20 MG, QW (1 EVERY 1 WEEKS)
     Route: 058
  91. ENBREL [Suspect]
     Active Substance: BENZYL ALCOHOL\ETANERCEPT
     Dosage: 40 MG
     Route: 058
  92. ENBREL [Suspect]
     Active Substance: BENZYL ALCOHOL\ETANERCEPT
     Indication: Rheumatoid arthritis
     Dosage: 50 MG, QW
     Route: 058
  93. ENBREL [Suspect]
     Active Substance: BENZYL ALCOHOL\ETANERCEPT
     Dosage: 50 MG, QW (1 EVERY 1 WEEKS)
     Route: 058
  94. ENBREL [Suspect]
     Active Substance: BENZYL ALCOHOL\ETANERCEPT
     Dosage: 90 MG
     Route: 058
  95. FOLIC ACID [Suspect]
     Active Substance: FOLIC ACID
     Dosage: 0.5 MG
     Route: 065
  96. FOLIC ACID [Suspect]
     Active Substance: FOLIC ACID
     Dosage: 1 G
     Route: 065
  97. FOLIC ACID [Suspect]
     Active Substance: FOLIC ACID
     Dosage: 1 MG
     Route: 048
  98. FOLIC ACID [Suspect]
     Active Substance: FOLIC ACID
     Dosage: 1 MG
     Route: 058
  99. FOLIC ACID [Suspect]
     Active Substance: FOLIC ACID
     Dosage: 1 MG
     Route: 065
  100. FOLIC ACID [Suspect]
     Active Substance: FOLIC ACID
     Dosage: 15 MG
     Route: 048
  101. FOLIC ACID [Suspect]
     Active Substance: FOLIC ACID
     Dosage: 25 MG
     Route: 048
  102. FOLIC ACID [Suspect]
     Active Substance: FOLIC ACID
     Dosage: 25 MG
     Route: 065
  103. FOLIC ACID [Suspect]
     Active Substance: FOLIC ACID
     Dosage: 3 MG
     Route: 065
  104. FOLIC ACID [Suspect]
     Active Substance: FOLIC ACID
     Dosage: 5 MG
     Route: 048
  105. FOLIC ACID [Suspect]
     Active Substance: FOLIC ACID
     Indication: Rheumatoid arthritis
     Dosage: 5 MG
     Route: 065
  106. FOLIC ACID [Suspect]
     Active Substance: FOLIC ACID
     Dosage: 50 MG
     Route: 065
  107. FOLIC ACID [Suspect]
     Active Substance: FOLIC ACID
     Dosage: 500 MG
     Route: 065
  108. FOLIC ACID [Suspect]
     Active Substance: FOLIC ACID
     Dosage: UNK
     Route: 058
  109. FLUMETHASONE PIVALATE [Suspect]
     Active Substance: FLUMETHASONE PIVALATE
     Indication: Rheumatoid arthritis
     Dosage: UNK
     Route: 058
  110. FOSAMAX [Suspect]
     Active Substance: ALENDRONATE SODIUM
     Indication: Rheumatoid arthritis
     Dosage: UNK
     Route: 048
  111. GOLIMUMAB [Suspect]
     Active Substance: GOLIMUMAB
     Dosage: UNK
     Route: 058
  112. GOLIMUMAB [Suspect]
     Active Substance: GOLIMUMAB
     Indication: Rheumatoid arthritis
     Dosage: UNK
     Route: 065
  113. GOLIMUMAB [Suspect]
     Active Substance: GOLIMUMAB
     Dosage: UNK
     Route: 065
  114. HYDROCORTISONE [Suspect]
     Active Substance: HYDROCORTISONE
     Indication: Rheumatoid arthritis
     Dosage: UNK
     Route: 065
  115. HYDROXYCHLOROQUINE SULFATE [Suspect]
     Active Substance: HYDROXYCHLOROQUINE SULFATE
     Indication: Rheumatoid arthritis
     Dosage: 400 MG, QD
     Route: 065
  116. HYDROXYCHLOROQUINE SULFATE [Suspect]
     Active Substance: HYDROXYCHLOROQUINE SULFATE
     Dosage: 400 MG
     Route: 048
  117. HYDROXYCHLOROQUINE SULFATE [Suspect]
     Active Substance: HYDROXYCHLOROQUINE SULFATE
     Dosage: UNK
     Route: 065
  118. HUMIRA [Suspect]
     Active Substance: ADALIMUMAB
     Dosage: 4 MG
     Route: 058
  119. HUMIRA [Suspect]
     Active Substance: ADALIMUMAB
     Dosage: 40 MG
     Route: 057
  120. HUMIRA [Suspect]
     Active Substance: ADALIMUMAB
     Indication: Psoriatic arthropathy
     Dosage: 40 MG
     Route: 058
  121. HUMIRA [Suspect]
     Active Substance: ADALIMUMAB
     Indication: Rheumatoid arthritis
     Dosage: 40 MG (SOLUTION FOR INFUSION)
     Route: 058
  122. HUMIRA [Suspect]
     Active Substance: ADALIMUMAB
     Dosage: UNK
     Route: 057
  123. HUMIRA [Suspect]
     Active Substance: ADALIMUMAB
     Dosage: UNK
     Route: 058
  124. HYDROCORTISONE SODIUM SUCCINATE [Suspect]
     Active Substance: HYDROCORTISONE SODIUM SUCCINATE
     Indication: Rheumatoid arthritis
     Dosage: 25 MG
     Route: 030
  125. HYDROCORTISONE ACETATE [Suspect]
     Active Substance: HYDROCORTISONE ACETATE
     Dosage: UNK
     Route: 003
  126. HYDROCORTISONE ACETATE [Suspect]
     Active Substance: HYDROCORTISONE ACETATE
     Dosage: UNK
     Route: 048
  127. HYDROCORTISONE ACETATE [Suspect]
     Active Substance: HYDROCORTISONE ACETATE
     Dosage: UNK
     Route: 058
  128. HYDROCORTISONE ACETATE [Suspect]
     Active Substance: HYDROCORTISONE ACETATE
     Dosage: UNK
     Route: 058
  129. HYDROCORTISONE ACETATE [Suspect]
     Active Substance: HYDROCORTISONE ACETATE
     Indication: Rheumatoid arthritis
     Dosage: UNK
     Route: 065
  130. HYDROCORTISONE PROBUTATE [Suspect]
     Active Substance: HYDROCORTISONE PROBUTATE
     Indication: Rheumatoid arthritis
     Dosage: UNK
     Route: 065
  131. HYDROXYCHLOROQUINE [Suspect]
     Active Substance: HYDROXYCHLOROQUINE
     Indication: Rheumatoid arthritis
     Dosage: UNK
     Route: 065
  132. HYDROXYCHLOROQUINE DIPHOSPHATE [Suspect]
     Active Substance: HYDROXYCHLOROQUINE DIPHOSPHATE
     Indication: Product used for unknown indication
     Dosage: 400 MG, QD
     Route: 065
  133. INFLIXIMAB [Suspect]
     Active Substance: INFLIXIMAB
     Dosage: 400 MG
     Route: 042
  134. INFLIXIMAB [Suspect]
     Active Substance: INFLIXIMAB
     Dosage: 400 MG, 1 TIME EVERY 11 WEEKS
     Route: 065
  135. INFLIXIMAB [Suspect]
     Active Substance: INFLIXIMAB
     Dosage: 400 MG, 1 TIME EVERY 6 WEEKS
     Route: 065
  136. INFLIXIMAB [Suspect]
     Active Substance: INFLIXIMAB
     Dosage: UNK (POWDER FOR SOLUTION FOR INJECTION)
     Route: 042
  137. INFLIXIMAB [Suspect]
     Active Substance: INFLIXIMAB
     Indication: Rheumatoid arthritis
     Dosage: UNK (SOLUTION FOR INFUSION)
     Route: 042
  138. ISOPROPANOLAMINE [Suspect]
     Active Substance: ISOPROPANOLAMINE
     Indication: Product used for unknown indication
     Dosage: UNK
     Route: 002
  139. KEVZARA [Suspect]
     Active Substance: SARILUMAB
     Indication: Rheumatoid arthritis
     Route: 065
  140. KEVZARA [Suspect]
     Active Substance: SARILUMAB
     Indication: Rheumatoid arthritis
     Route: 065
  141. LEFLUNOMIDE [Suspect]
     Active Substance: LEFLUNOMIDE
     Indication: Rheumatoid arthritis
     Dosage: 20 MG, QD
     Route: 048
  142. LEFLUNOMIDE [Suspect]
     Active Substance: LEFLUNOMIDE
     Dosage: UNK
     Route: 048
  143. LEFLUNOMIDE [Suspect]
     Active Substance: LEFLUNOMIDE
     Dosage: UNK
     Route: 065
  144. FLUMETHASONE PIVALATE [Suspect]
     Active Substance: FLUMETHASONE PIVALATE
     Indication: Rheumatoid arthritis
     Dosage: UNK
     Route: 065
  145. LYRICA [Suspect]
     Active Substance: PREGABALIN
     Indication: Fibromyalgia
     Dosage: UNK
     Route: 065
  146. LYRICA [Suspect]
     Active Substance: PREGABALIN
     Indication: Product used for unknown indication
  147. METHOTREXATE [Suspect]
     Active Substance: METHOTREXATE
     Dosage: 15 MG, QD
     Route: 048
  148. METHOTREXATE [Suspect]
     Active Substance: METHOTREXATE
     Dosage: 20 MG, QW
     Route: 065
  149. METHOTREXATE [Suspect]
     Active Substance: METHOTREXATE
     Dosage: 20 MG, QD
     Route: 065
  150. METHOTREXATE [Suspect]
     Active Substance: METHOTREXATE
     Dosage: 20 MG, QD (1 EVERY 1 DAYS)
     Route: 048
  151. METHOTREXATE [Suspect]
     Active Substance: METHOTREXATE
     Indication: Rheumatoid arthritis
     Dosage: 25 MG, QW
     Route: 058
  152. METHOTREXATE [Suspect]
     Active Substance: METHOTREXATE
     Dosage: 25 MG, QW
     Route: 058
  153. METHOTREXATE [Suspect]
     Active Substance: METHOTREXATE
     Dosage: 25 MG, QW (1 EVERY 1 WEEKS)
     Route: 013
  154. METHOTREXATE [Suspect]
     Active Substance: METHOTREXATE
     Dosage: 25 MG, QD
     Route: 048
  155. METHOTREXATE [Suspect]
     Active Substance: METHOTREXATE
     Dosage: UNK, QD (1 EVERY 1 DAYS)
     Route: 065
  156. METHOTREXATE SODIUM [Suspect]
     Active Substance: METHOTREXATE SODIUM
     Indication: Rheumatoid arthritis
     Dosage: 2 DOSAGE FORM
     Route: 048
  157. MYCOPHENOLATE MOFETIL [Suspect]
     Active Substance: MYCOPHENOLATE MOFETIL
     Indication: Rheumatoid arthritis
     Dosage: UNK
     Route: 065
  158. NAPROXEN SODIUM [Suspect]
     Active Substance: NAPROXEN\NAPROXEN SODIUM
     Indication: Product used for unknown indication
     Dosage: 500 MG, BID (2 EVERY 1 DAYS)
     Route: 065
  159. NEOMYCIN [Suspect]
     Active Substance: NEOMYCIN
     Indication: Product used for unknown indication
     Dosage: UNK
     Route: 065
  160. OXYCODONE [Suspect]
     Active Substance: OXYCODONE\OXYCODONE HYDROCHLORIDE
     Indication: Rheumatoid arthritis
     Dosage: UNK
     Route: 065
  161. ORENCIA [Suspect]
     Active Substance: ABATACEPT
     Dosage: 0.5 MG, Q24H
     Route: 065
  162. ORENCIA [Suspect]
     Active Substance: ABATACEPT
     Dosage: 25 MG
     Route: 058
  163. ORENCIA [Suspect]
     Active Substance: ABATACEPT
     Dosage: 25 MG
     Route: 058
  164. ORENCIA [Suspect]
     Active Substance: ABATACEPT
     Dosage: 5 MG, QD
     Route: 065
  165. ORENCIA [Suspect]
     Active Substance: ABATACEPT
     Dosage: 5 MG
     Route: 065
  166. ORENCIA [Suspect]
     Active Substance: ABATACEPT
     Indication: Rheumatoid arthritis
     Dosage: UNK
     Route: 041
  167. ORENCIA [Suspect]
     Active Substance: ABATACEPT
     Dosage: UNK
     Route: 042
  168. ORENCIA [Suspect]
     Active Substance: ABATACEPT
     Dosage: UNK
     Route: 058
  169. ORENCIA [Suspect]
     Active Substance: ABATACEPT
     Dosage: UNK
     Route: 058
  170. ORENCIA [Suspect]
     Active Substance: ABATACEPT
     Dosage: UNK
     Route: 067
  171. OTEZLA [Suspect]
     Active Substance: APREMILAST
     Indication: Product used for unknown indication
     Dosage: 3 MG, BID (2 EVERY 1 DAYS)
     Route: 048
  172. OTEZLA [Suspect]
     Active Substance: APREMILAST
     Dosage: UNK
     Route: 048
  173. OXYCODONE AND ACETAMINOPHEN [Suspect]
     Active Substance: ACETAMINOPHEN\OXYCODONE HYDROCHLORIDE
     Indication: Product used for unknown indication
     Dosage: UNK
     Route: 065
  174. OXYCODONE TEREPHTHALATE [Suspect]
     Active Substance: OXYCODONE TEREPHTHALATE
     Indication: Product used for unknown indication
     Dosage: UNK
     Route: 065
  175. ACETAMINOPHEN [Suspect]
     Active Substance: ACETAMINOPHEN
     Indication: Product used for unknown indication
     Dosage: UNK
     Route: 065
  176. PREDNISONE [Suspect]
     Active Substance: PREDNISONE
     Indication: Psoriatic arthropathy
     Dosage: 0.5 MG
     Route: 065
  177. PREDNISONE [Suspect]
     Active Substance: PREDNISONE
     Dosage: 1 MG
     Route: 065
  178. PREDNISONE [Suspect]
     Active Substance: PREDNISONE
     Indication: Condition aggravated
     Dosage: 40 MG
     Route: 048
  179. PREDNISONE [Suspect]
     Active Substance: PREDNISONE
     Indication: Rheumatoid arthritis
     Dosage: 5 MG
     Route: 048
  180. PREDNISONE [Suspect]
     Active Substance: PREDNISONE
     Dosage: 7.5 MG
     Route: 048
  181. PREDNISONE [Suspect]
     Active Substance: PREDNISONE
     Dosage: UNK
     Route: 042
  182. PREGABALIN [Suspect]
     Active Substance: PREGABALIN
     Indication: Rheumatoid arthritis
     Dosage: UNK
     Route: 065
  183. PANTOPRAZOLE SODIUM ANHYDROUS [Suspect]
     Active Substance: PANTOPRAZOLE SODIUM ANHYDROUS
     Indication: Product used for unknown indication
     Dosage: UNK
     Route: 065
  184. PERIOGARD [Suspect]
     Active Substance: CHLORHEXIDINE GLUCONATE
     Indication: Product used for unknown indication
     Dosage: UNK
     Route: 065
  185. PHTHALYLSULFATHIAZOLE [Suspect]
     Active Substance: PHTHALYLSULFATHIAZOLE
     Dosage: 1000 MG, BID
     Route: 048
  186. PHTHALYLSULFATHIAZOLE [Suspect]
     Active Substance: PHTHALYLSULFATHIAZOLE
     Dosage: 1000 MG, BID (2 EVERY 1 DAYS)
     Route: 065
  187. PHTHALYLSULFATHIAZOLE [Suspect]
     Active Substance: PHTHALYLSULFATHIAZOLE
     Dosage: 1000 MG
     Route: 048
  188. PHTHALYLSULFATHIAZOLE [Suspect]
     Active Substance: PHTHALYLSULFATHIAZOLE
     Dosage: 2000 MG
     Route: 048
  189. PHTHALYLSULFATHIAZOLE [Suspect]
     Active Substance: PHTHALYLSULFATHIAZOLE
     Dosage: 400 MG, QD (1 EVERY 1 DAYS)
     Route: 065
  190. PHTHALYLSULFATHIAZOLE [Suspect]
     Active Substance: PHTHALYLSULFATHIAZOLE
     Dosage: 500 MG
     Route: 048
  191. PHTHALYLSULFATHIAZOLE [Suspect]
     Active Substance: PHTHALYLSULFATHIAZOLE
     Dosage: UNK, Q24H
     Route: 048
  192. PHTHALYLSULFATHIAZOLE [Suspect]
     Active Substance: PHTHALYLSULFATHIAZOLE
     Dosage: UNK
     Route: 016
  193. PHTHALYLSULFATHIAZOLE [Suspect]
     Active Substance: PHTHALYLSULFATHIAZOLE
     Dosage: UNK
     Route: 016
  194. PHTHALYLSULFATHIAZOLE [Suspect]
     Active Substance: PHTHALYLSULFATHIAZOLE
     Indication: Rheumatoid arthritis
     Dosage: UNK
     Route: 042
  195. PHTHALYLSULFATHIAZOLE [Suspect]
     Active Substance: PHTHALYLSULFATHIAZOLE
     Dosage: UNK
     Route: 058
  196. PLAQUENIL [Suspect]
     Active Substance: HYDROXYCHLOROQUINE SULFATE
     Indication: Rheumatoid arthritis
     Dosage: 400 MG
     Route: 048
  197. PLAQUENIL [Suspect]
     Active Substance: HYDROXYCHLOROQUINE SULFATE
     Dosage: UNK
     Route: 065
  198. PSEUDOEPHEDRINE [Suspect]
     Active Substance: PSEUDOEPHEDRINE
     Indication: Rheumatoid arthritis
     Dosage: 10 MG
     Route: 065
  199. PSEUDOEPHEDRINE [Suspect]
     Active Substance: PSEUDOEPHEDRINE
     Dosage: 25 MG
     Route: 065
  200. RITUXIMAB [Suspect]
     Active Substance: RITUXIMAB
     Dosage: UNK
     Route: 041
  201. RITUXIMAB [Suspect]
     Active Substance: RITUXIMAB
     Indication: Rheumatoid arthritis
     Dosage: UNK
     Route: 042
  202. RITUXIMAB [Suspect]
     Active Substance: RITUXIMAB
     Dosage: UNK
     Route: 042
  203. RITUXIMAB [Suspect]
     Active Substance: RITUXIMAB
     Dosage: UNK
     Route: 042
  204. RITUXIMAB [Suspect]
     Active Substance: RITUXIMAB
     Dosage: UNK
     Route: 058
  205. RITUXIMAB [Suspect]
     Active Substance: RITUXIMAB
     Dosage: UNK
     Route: 058
  206. RAMIPRIL [Suspect]
     Active Substance: RAMIPRIL
     Indication: Product used for unknown indication
     Dosage: UNK
     Route: 065
  207. CETIRIZINE HYDROCHLORIDE [Suspect]
     Active Substance: CETIRIZINE HYDROCHLORIDE
     Indication: Rheumatoid arthritis
     Dosage: 10 MG, QD
     Route: 048
  208. CETIRIZINE HYDROCHLORIDE [Suspect]
     Active Substance: CETIRIZINE HYDROCHLORIDE
     Dosage: 10 MG
     Route: 065
  209. CETIRIZINE HYDROCHLORIDE [Suspect]
     Active Substance: CETIRIZINE HYDROCHLORIDE
     Dosage: 20 MG
     Route: 065
  210. CETIRIZINE HYDROCHLORIDE [Suspect]
     Active Substance: CETIRIZINE HYDROCHLORIDE
     Dosage: UNK
     Route: 016
  211. CETIRIZINE HYDROCHLORIDE [Suspect]
     Active Substance: CETIRIZINE HYDROCHLORIDE
     Dosage: UNK, (01318001)
     Route: 065
  212. CETIRIZINE HYDROCHLORIDE\PSEUDOEPHEDRINE HYDROCHLORIDE [Suspect]
     Active Substance: CETIRIZINE HYDROCHLORIDE\PSEUDOEPHEDRINE HYDROCHLORIDE
     Dosage: 10 MG (EXTENDED RELEASE)
     Route: 065
  213. CETIRIZINE HYDROCHLORIDE\PSEUDOEPHEDRINE HYDROCHLORIDE [Suspect]
     Active Substance: CETIRIZINE HYDROCHLORIDE\PSEUDOEPHEDRINE HYDROCHLORIDE
     Indication: Rheumatoid arthritis
     Dosage: UNK (EXTENDED RELEASE)
     Route: 065
  214. REMICADE [Suspect]
     Active Substance: INFLIXIMAB
     Indication: Rheumatoid arthritis
     Dosage: 400 MG
     Route: 042
  215. REMICADE [Suspect]
     Active Substance: INFLIXIMAB
     Dosage: 400 MG
     Route: 042
  216. REMICADE [Suspect]
     Active Substance: INFLIXIMAB
     Dosage: 400 MG
     Route: 042
  217. REMICADE [Suspect]
     Active Substance: INFLIXIMAB
     Dosage: 400 MG
     Route: 042
  218. REMICADE [Suspect]
     Active Substance: INFLIXIMAB
     Dosage: 400 MG
     Route: 042
  219. REMICADE [Suspect]
     Active Substance: INFLIXIMAB
     Dosage: 400 MG
     Route: 042
  220. REMICADE [Suspect]
     Active Substance: INFLIXIMAB
     Dosage: 400 MG
     Route: 042
  221. REMICADE [Suspect]
     Active Substance: INFLIXIMAB
     Dosage: 400 MG
     Route: 042
  222. REMICADE [Suspect]
     Active Substance: INFLIXIMAB
     Dosage: UNK
     Route: 042
  223. REMICADE [Suspect]
     Active Substance: INFLIXIMAB
     Dosage: UNK
     Route: 042
  224. REMICADE [Suspect]
     Active Substance: INFLIXIMAB
     Dosage: UNK
     Route: 065
  225. REMICADE [Suspect]
     Active Substance: INFLIXIMAB
     Dosage: UNK
     Route: 065
  226. SALAZOPYRINE [Suspect]
     Active Substance: SULFASALAZINE
     Indication: Rheumatoid arthritis
     Dosage: 1 G, BID
     Route: 048
  227. SALAZOPYRINE [Suspect]
     Active Substance: SULFASALAZINE
     Dosage: UNK
     Route: 065
  228. SALAZOPYRINE [Suspect]
     Active Substance: SULFASALAZINE
     Dosage: UNK
     Route: 065
  229. SARILUMAB [Suspect]
     Active Substance: SARILUMAB
     Indication: Rheumatoid arthritis
     Dosage: UNK
     Route: 065
  230. SIMPONI [Suspect]
     Active Substance: GOLIMUMAB
     Indication: Rheumatoid arthritis
     Dosage: 50 MG, QMO (SOLUTION FOR INJECTION IN PRE-FILLED SYRING)
     Route: 058
  231. SIMPONI [Suspect]
     Active Substance: GOLIMUMAB
     Dosage: 50 MG, QMO (SOLUTION FOR INJECTION IN PRE-FILLED SYRING)
     Route: 058
  232. SIMPONI [Suspect]
     Active Substance: GOLIMUMAB
     Dosage: 50 MG, QMO (SOLUTION, 1 EVERY 1 MONTHS)
     Route: 065
  233. SIMPONI [Suspect]
     Active Substance: GOLIMUMAB
     Dosage: UNK
     Route: 058
  234. SIMPONI [Suspect]
     Active Substance: GOLIMUMAB
     Dosage: UNK (SOLUTION FOR INFUSION)
     Route: 042
  235. SIMPONI [Suspect]
     Active Substance: GOLIMUMAB
     Dosage: UNK (SOLUTION FOR INJECTION IN PRE-FILLED SYRING)
     Route: 058
  236. SIMPONI [Suspect]
     Active Substance: GOLIMUMAB
     Dosage: UNK, (SOLUTION SUBCUTANEOUS)
     Route: 042
  237. STELARA [Suspect]
     Active Substance: USTEKINUMAB
     Dosage: 45 MG
     Route: 058
  238. STELARA [Suspect]
     Active Substance: USTEKINUMAB
     Indication: Psoriatic arthropathy
     Dosage: 45 MG (SOLUTION FOR INJECTION)
     Route: 042
  239. STELARA [Suspect]
     Active Substance: USTEKINUMAB
     Dosage: 45 MG, (SOLUTION SUBCUTANEOUS)
     Route: 042
  240. STELARA [Suspect]
     Active Substance: USTEKINUMAB
     Indication: Rheumatoid arthritis
     Dosage: 45 (UNSPECIFIED UNITS)
     Route: 058
  241. STELARA [Suspect]
     Active Substance: USTEKINUMAB
     Dosage: UNK
     Route: 058
  242. STELARA [Suspect]
     Active Substance: USTEKINUMAB
     Dosage: UNK
     Route: 065
  243. SULFAMETHOXAZOLE [Suspect]
     Active Substance: SULFAMETHOXAZOLE
     Indication: Rheumatoid arthritis
     Dosage: UNK
     Route: 065
  244. SULFAMETHOXAZOLE AND TRIMETHOPRIM [Suspect]
     Active Substance: SULFAMETHOXAZOLE\TRIMETHOPRIM
     Indication: Product used for unknown indication
     Dosage: UNK
     Route: 065
  245. SULFASALAZINE [Suspect]
     Active Substance: SULFASALAZINE
     Dosage: 1 G, QD
     Route: 065
  246. SULFASALAZINE [Suspect]
     Active Substance: SULFASALAZINE
     Dosage: 1 G, BID (2 EVERY 1 DAYS)
     Route: 065
  247. SULFASALAZINE [Suspect]
     Active Substance: SULFASALAZINE
     Dosage: 1000 MG, QD
     Route: 048
  248. SULFASALAZINE [Suspect]
     Active Substance: SULFASALAZINE
     Dosage: 1000 MG, BID (2 EVERY 1 DAYS)
     Route: 048
  249. SULFASALAZINE [Suspect]
     Active Substance: SULFASALAZINE
     Dosage: 2 G, Q24H
     Route: 048
  250. SULFASALAZINE [Suspect]
     Active Substance: SULFASALAZINE
     Indication: Rheumatoid arthritis
     Dosage: 500 MG
     Route: 048
  251. SULFASALAZINE [Suspect]
     Active Substance: SULFASALAZINE
     Dosage: UNK, BID
     Route: 048
  252. SULFASALAZINE [Suspect]
     Active Substance: SULFASALAZINE
     Dosage: UNK
     Route: 048
  253. SULFATHALIDINE [Suspect]
     Active Substance: PHTHALYLSULFATHIAZOLE
     Indication: Product used for unknown indication
     Dosage: UNK
     Route: 065
  254. TRAMADOL HYDROCHLORIDE [Suspect]
     Active Substance: TRAMADOL HYDROCHLORIDE
     Indication: Rheumatoid arthritis
     Dosage: UNK
     Route: 065
  255. TOCILIZUMAB [Suspect]
     Active Substance: TOCILIZUMAB
     Dosage: UNK
     Route: 005
  256. TOCILIZUMAB [Suspect]
     Active Substance: TOCILIZUMAB
     Dosage: UNK
     Route: 042
  257. TOCILIZUMAB [Suspect]
     Active Substance: TOCILIZUMAB
     Indication: Rheumatoid arthritis
     Dosage: UNK
     Route: 058
  258. TOFACITINIB [Suspect]
     Active Substance: TOFACITINIB
     Dosage: 5 MG, QW
     Route: 048
  259. TOFACITINIB [Suspect]
     Active Substance: TOFACITINIB
     Indication: Rheumatoid arthritis
     Dosage: 5 MG, QD
     Route: 065
  260. TOFACITINIB CITRATE [Suspect]
     Active Substance: TOFACITINIB CITRATE
     Dosage: 10 MG, QD
     Route: 065
  261. TOFACITINIB CITRATE [Suspect]
     Active Substance: TOFACITINIB CITRATE
     Indication: Psoriatic arthropathy
     Dosage: 5 MG, QW
     Route: 065
  262. TOFACITINIB CITRATE [Suspect]
     Active Substance: TOFACITINIB CITRATE
     Indication: Rheumatoid arthritis
     Dosage: 5 MG, BID (2X/DAY)
     Route: 048
  263. TOFACITINIB CITRATE [Suspect]
     Active Substance: TOFACITINIB CITRATE
     Dosage: 5 MG
     Route: 065
  264. TOFACITINIB CITRATE [Suspect]
     Active Substance: TOFACITINIB CITRATE
     Dosage: UNK
     Route: 065
  265. TOPICORT [Suspect]
     Active Substance: DESOXIMETASONE
     Dosage: UNK
     Route: 048
  266. TOPICORT [Suspect]
     Active Substance: DESOXIMETASONE
     Indication: Rheumatoid arthritis
     Dosage: UNK
     Route: 058
  267. FLUMETHASONE PIVALATE [Suspect]
     Active Substance: FLUMETHASONE PIVALATE
     Indication: Rheumatoid arthritis
     Dosage: UNK
     Route: 058
  268. USTEKINUMAB [Suspect]
     Active Substance: USTEKINUMAB
     Dosage: 45 MG, 1 TIME EVERY 12 WEEKS
     Route: 058
  269. USTEKINUMAB [Suspect]
     Active Substance: USTEKINUMAB
     Indication: Product used for unknown indication
     Dosage: 45 MG; IN PRE-FILLED SYRINGE
     Route: 042
  270. VITAMIN C [Suspect]
     Active Substance: ASCORBIC ACID
     Indication: Rheumatoid arthritis
     Dosage: UNK
     Route: 065
  271. VITAMIN B3 [Suspect]
     Active Substance: NIACIN
     Indication: Product used for unknown indication
     Dosage: UNK
     Route: 065
  272. PREDNISONE [Suspect]
     Active Substance: PREDNISONE
     Indication: Rheumatoid arthritis
     Dosage: UNK
     Route: 048
  273. XELJANZ [Suspect]
     Active Substance: TOFACITINIB CITRATE
     Dosage: 1 DOSAGE FORM, Q24H
     Route: 065
  274. XELJANZ [Suspect]
     Active Substance: TOFACITINIB CITRATE
     Dosage: 10 MG, Q24H
     Route: 065
  275. XELJANZ [Suspect]
     Active Substance: TOFACITINIB CITRATE
     Dosage: 10 MG
     Route: 065
  276. XELJANZ [Suspect]
     Active Substance: TOFACITINIB CITRATE
     Indication: Psoriatic arthropathy
     Dosage: 5 MG, QW
     Route: 048
  277. XELJANZ [Suspect]
     Active Substance: TOFACITINIB CITRATE
     Dosage: 5 MG, QW, (1 EVERY 1 WEEKS)
     Route: 048
  278. XELJANZ [Suspect]
     Active Substance: TOFACITINIB CITRATE
     Dosage: 5 MG, QD
     Route: 065
  279. XELJANZ [Suspect]
     Active Substance: TOFACITINIB CITRATE
     Indication: Rheumatoid arthritis
     Dosage: 5 MG, BID
     Route: 048
  280. XELJANZ [Suspect]
     Active Substance: TOFACITINIB CITRATE
     Dosage: 5 MG, BID (2 EVERY 1 DAYS)
     Route: 048
  281. XELJANZ [Suspect]
     Active Substance: TOFACITINIB CITRATE
     Dosage: 5 MG
     Route: 016
  282. XELJANZ [Suspect]
     Active Substance: TOFACITINIB CITRATE
     Dosage: 5 MG
     Route: 065
  283. Atasol [Concomitant]
     Indication: Product used for unknown indication
     Dosage: UNK (00020001)
     Route: 065
  284. ATIVAN [Concomitant]
     Active Substance: LORAZEPAM
     Indication: Product used for unknown indication
     Dosage: UNK
     Route: 065
  285. CAFFEINE [Concomitant]
     Active Substance: CAFFEINE
     Indication: Product used for unknown indication
     Dosage: UNK
     Route: 065
  286. CAFFEINE CITRATE [Concomitant]
     Active Substance: CAFFEINE CITRATE
     Indication: Product used for unknown indication
     Dosage: UNK
     Route: 065
  287. CALCIUM [Concomitant]
     Active Substance: CALCIUM
     Indication: Product used for unknown indication
     Dosage: UNK
     Route: 065
  288. CALCIUM CARBONATE [Concomitant]
     Active Substance: CALCIUM CARBONATE
     Indication: Product used for unknown indication
     Dosage: UNK
     Route: 065
  289. CALCIUM GLUCONATE [Concomitant]
     Active Substance: CALCIUM GLUCONATE
     Indication: Product used for unknown indication
     Dosage: UNK
     Route: 065
  290. CHOLECALCIFEROL [Concomitant]
     Active Substance: CHOLECALCIFEROL
     Indication: Product used for unknown indication
     Dosage: UNK
     Route: 065
  291. CODEINE [Concomitant]
     Active Substance: CODEINE
     Indication: Product used for unknown indication
     Dosage: UNK
     Route: 065
  292. CHOLECALCIFEROL [Concomitant]
     Active Substance: CHOLECALCIFEROL
     Indication: Product used for unknown indication
     Dosage: UNK
     Route: 065
  293. DESOGESTREL AND ETHINYL ESTRADIOL [Concomitant]
     Active Substance: DESOGESTREL\ETHINYL ESTRADIOL
     Indication: Product used for unknown indication
     Dosage: UNK
     Route: 065
  294. DEXAMETHASONE [Concomitant]
     Active Substance: DEXAMETHASONE
     Indication: Product used for unknown indication
     Dosage: UNK
     Route: 065
  295. DICLOFENAC POTASSIUM [Concomitant]
     Active Substance: DICLOFENAC POTASSIUM
     Indication: Product used for unknown indication
     Dosage: UNK
     Route: 065
  296. DIHYDROCODEINE [Concomitant]
     Active Substance: DIHYDROCODEINE
     Indication: Product used for unknown indication
     Dosage: UNK
     Route: 065
  297. DOXYCYCLINE [Concomitant]
     Active Substance: DOXYCYCLINE
     Indication: Product used for unknown indication
     Dosage: UNK
     Route: 065
  298. ERGOCALCIFEROL [Concomitant]
     Active Substance: ERGOCALCIFEROL
     Indication: Product used for unknown indication
     Dosage: UNK
     Route: 065
  299. GLUCOSAMINE [Concomitant]
     Active Substance: GLUCOSAMINE
     Indication: Product used for unknown indication
     Dosage: UNK
     Route: 065
  300. IBUPROFEN [Concomitant]
     Active Substance: IBUPROFEN
     Indication: Product used for unknown indication
     Dosage: UNK
     Route: 065
  301. LANSOPRAZOLE [Concomitant]
     Active Substance: LANSOPRAZOLE
     Indication: Product used for unknown indication
     Dosage: UNK (DELAYED RELEASE)
     Route: 065
  302. LEVOTHYROXINE SODIUM [Concomitant]
     Active Substance: LEVOTHYROXINE SODIUM
     Indication: Product used for unknown indication
     Dosage: UNK
     Route: 065
  303. LISINOPRIL [Concomitant]
     Active Substance: LISINOPRIL
     Indication: Product used for unknown indication
     Dosage: UNK
     Route: 065
  304. LISINOPRIL [Concomitant]
     Active Substance: LISINOPRIL
     Indication: Product used for unknown indication
     Dosage: UNK
     Route: 065
  305. LORAZEPAM [Concomitant]
     Active Substance: LORAZEPAM
     Indication: Product used for unknown indication
     Dosage: UNK
     Route: 065
  306. MAGNESIUM [Concomitant]
     Active Substance: MAGNESIUM
     Indication: Product used for unknown indication
     Dosage: UNK
     Route: 065
  307. MELOXICAM [Concomitant]
     Active Substance: MELOXICAM
     Indication: Product used for unknown indication
     Dosage: UNK
     Route: 065
  308. PANTOPRAZOLE SODIUM [Concomitant]
     Active Substance: PANTOPRAZOLE SODIUM
     Indication: Product used for unknown indication
     Dosage: UNK (ENTERIC COATED)
     Route: 065
  309. PANTOPRAZOLE SODIUM [Concomitant]
     Active Substance: PANTOPRAZOLE SODIUM
     Indication: Product used for unknown indication
     Dosage: UNK
     Route: 065
  310. ACETAMINOPHEN [Concomitant]
     Active Substance: ACETAMINOPHEN
     Indication: Product used for unknown indication
     Dosage: UNK
     Route: 065
  311. PIROXICAM [Concomitant]
     Active Substance: PIROXICAM
     Indication: Product used for unknown indication
     Dosage: UNK
     Route: 065
  312. PREDNISOLONE [Concomitant]
     Active Substance: PREDNISOLONE
     Indication: Product used for unknown indication
     Dosage: UNK
     Route: 065
  313. PREVACID [Concomitant]
     Active Substance: LANSOPRAZOLE
     Indication: Product used for unknown indication
     Dosage: UNK
     Route: 065
  314. PRINIVIL [Concomitant]
     Active Substance: LISINOPRIL
     Indication: Product used for unknown indication
     Dosage: UNK
     Route: 065
  315. QUETIAPINE [Concomitant]
     Active Substance: QUETIAPINE
     Indication: Product used for unknown indication
     Dosage: UNK
     Route: 065
  316. QUETIAPINE FUMARATE [Concomitant]
     Active Substance: QUETIAPINE FUMARATE
     Indication: Product used for unknown indication
     Dosage: UNK
     Route: 065
  317. RAMIPRIL [Concomitant]
     Active Substance: RAMIPRIL
     Indication: Product used for unknown indication
     Dosage: UNK
     Route: 065
  318. RISEDRONATE SODIUM [Concomitant]
     Active Substance: RISEDRONATE SODIUM
     Indication: Product used for unknown indication
     Dosage: UNK
     Route: 065
  319. SULFASALAZINE [Concomitant]
     Active Substance: SULFASALAZINE
     Indication: Product used for unknown indication
     Dosage: UNK
     Route: 065
  320. SULFASALAZINE [Concomitant]
     Active Substance: SULFASALAZINE
     Dosage: UNK
     Route: 065
  321. FISH OIL [Concomitant]
     Active Substance: FISH OIL
     Indication: Product used for unknown indication
     Dosage: UNK
     Route: 065
  322. SYNTHROID [Concomitant]
     Active Substance: LEVOTHYROXINE SODIUM
     Indication: Product used for unknown indication
     Dosage: UNK
     Route: 065
  323. TYLENOL [Concomitant]
     Active Substance: ACETAMINOPHEN
     Indication: Product used for unknown indication
     Dosage: UNK
     Route: 065
  324. TYLENOL WITH CODEINE [Concomitant]
     Active Substance: ACETAMINOPHEN\CODEINE PHOSPHATE
     Indication: Product used for unknown indication
     Dosage: UNK
     Route: 065
  325. VITAMIN C [Concomitant]
     Active Substance: ASCORBIC ACID
     Indication: Product used for unknown indication
     Dosage: UNK
     Route: 065
  326. ZYRTEC [Concomitant]
     Active Substance: CETIRIZINE HYDROCHLORIDE
     Indication: Product used for unknown indication
     Dosage: UNK
     Route: 065

REACTIONS (29)
  - Swollen joint count increased [Fatal]
  - Fibromyalgia [Fatal]
  - Oedema [Fatal]
  - Abdominal pain upper [Fatal]
  - Liver injury [Fatal]
  - Vomiting [Fatal]
  - Psoriatic arthropathy [Fatal]
  - Sinusitis [Fatal]
  - Diarrhoea [Fatal]
  - Dizziness [Fatal]
  - C-reactive protein abnormal [Fatal]
  - Confusional state [Fatal]
  - Dry mouth [Fatal]
  - Irritable bowel syndrome [Fatal]
  - Prescribed overdose [Fatal]
  - Exposure during pregnancy [Fatal]
  - Maternal exposure during pregnancy [Fatal]
  - Live birth [Fatal]
  - Contraindicated product administered [Fatal]
  - Intentional product use issue [Fatal]
  - Product use in unapproved indication [Fatal]
  - Off label use [Fatal]
  - Therapy non-responder [Fatal]
  - Therapeutic product effect decreased [Fatal]
  - Bursitis [Fatal]
  - Joint range of motion decreased [Fatal]
  - Inflammation [Fatal]
  - Facet joint syndrome [Fatal]
  - Pregnancy [Unknown]
